FAERS Safety Report 6126432-1 (Version None)
Quarter: 2009Q1

REPORT INFORMATION
  Report Type: 
  Country: None (occurrence: None)
  Receive Date: 20090320
  Receipt Date: 20090309
  Transmission Date: 20090719
  Serious: Yes (Other)
  Sender: FDA-Public Use
  Company Number: AU-ELI_LILLY_AND_COMPANY-AU200808002334

PATIENT
  Sex: Male

DRUGS (3)
  1. STRATTERA [Suspect]
     Indication: ATTENTION DEFICIT/HYPERACTIVITY DISORDER
     Dosage: 85 MG, DAILY (1/D)
     Route: 065
     Dates: end: 20081201
  2. STRATTERA [Suspect]
     Dosage: 18 MG, DAILY (1/D))18MG TO 60MG DAILY
     Route: 065
     Dates: start: 20090101
  3. NITROGLYCERIN [Concomitant]
     Dosage: UNK, UNKNOWN
     Route: 065

REACTIONS (4)
  - CHEST DISCOMFORT [None]
  - HEART RATE INCREASED [None]
  - PALPITATIONS [None]
  - RAYNAUD'S PHENOMENON [None]
